FAERS Safety Report 5941920-6 (Version None)
Quarter: 2008Q4

REPORT INFORMATION
  Report Type: 
  Country: None (occurrence: None)
  Receive Date: 20081105
  Receipt Date: 20081028
  Transmission Date: 20090506
  Serious: Yes (Hospitalization)
  Sender: FDA-Public Use
  Company Number: SE-ASTRAZENECA-2008SE04999

PATIENT
  Age: 87 Year
  Sex: Female

DRUGS (3)
  1. METOPROLOL TARTRATE [Suspect]
     Indication: HYPERTENSION
     Route: 048
     Dates: start: 20080901
  2. RISPERDAL [Suspect]
     Indication: HALLUCINATION
     Route: 048
  3. MOVICOL [Concomitant]
     Dosage: 500 MG/ 400 IE

REACTIONS (1)
  - ORTHOSTATIC HYPOTENSION [None]
